FAERS Safety Report 19122235 (Version 2)
Quarter: 2021Q2

REPORT INFORMATION
  Report Type: Report from Study
  Country: US (occurrence: US)
  Receive Date: 20210412
  Receipt Date: 20210624
  Transmission Date: 20210717
  Serious: Yes (Hospitalization, Other)
  Sender: FDA-Public Use
  Company Number: US-TAKEDA-2021TUS021643

PATIENT
  Sex: Female

DRUGS (4)
  1. TEDUGLUTIDE [Suspect]
     Active Substance: TEDUGLUTIDE
     Indication: SHORT-BOWEL SYNDROME
     Dosage: 1.01 MILLILITER
     Route: 042
     Dates: start: 20200901
  2. TEDUGLUTIDE [Suspect]
     Active Substance: TEDUGLUTIDE
     Indication: SHORT-BOWEL SYNDROME
     Dosage: 1.01 MILLILITER
     Route: 042
     Dates: start: 20200901
  3. TEDUGLUTIDE [Suspect]
     Active Substance: TEDUGLUTIDE
     Indication: SHORT-BOWEL SYNDROME
     Dosage: 1.01 MILLILITER
     Route: 042
     Dates: start: 20200901
  4. TEDUGLUTIDE [Suspect]
     Active Substance: TEDUGLUTIDE
     Indication: SHORT-BOWEL SYNDROME
     Dosage: 1.01 MILLILITER
     Route: 042
     Dates: start: 20200901

REACTIONS (6)
  - Stoma closure [Unknown]
  - Dyspnoea [Unknown]
  - Weight increased [Unknown]
  - Deep vein thrombosis [Unknown]
  - Chest pain [Unknown]
  - Renal artery thrombosis [Unknown]
